FAERS Safety Report 5929757-5 (Version None)
Quarter: 2008Q4

REPORT INFORMATION
  Report Type: 
  Country: None (occurrence: None)
  Receive Date: 20081024
  Receipt Date: 20081016
  Transmission Date: 20090506
  Serious: Yes (Death)
  Sender: FDA-Public Use
  Company Number: US-JNJFOC-20080805785

PATIENT
  Sex: Male

DRUGS (13)
  1. LEVAQUIN [Suspect]
     Indication: DRUG USE FOR UNKNOWN INDICATION
     Route: 065
  2. SPIRIVA [Concomitant]
     Dosage: INHALATION
     Route: 055
  3. K-TAB [Concomitant]
     Route: 048
  4. CARDURA [Concomitant]
     Route: 048
  5. LASIX [Concomitant]
     Route: 048
  6. LASIX [Concomitant]
     Route: 048
  7. NEXIUM [Concomitant]
     Route: 048
  8. PROSCAR [Concomitant]
     Route: 048
  9. THEOPHYLLINE [Concomitant]
     Dosage: 0.5 TABLET
     Route: 048
  10. THEOPHYLLINE [Concomitant]
     Route: 048
  11. CARDIZEM CD [Concomitant]
     Route: 048
  12. SERTRALINE [Concomitant]
     Route: 048
  13. MARINOL [Concomitant]
     Route: 048

REACTIONS (3)
  - CONVULSION [None]
  - DEATH [None]
  - OEDEMA PERIPHERAL [None]
